FAERS Safety Report 9462587 (Version 1)
Quarter: 2013Q3

REPORT INFORMATION
  Report Type: Spontaneous
  Country: US (occurrence: US)
  Receive Date: 20130816
  Receipt Date: 20130816
  Transmission Date: 20140515
  Serious: Yes (Other)
  Sender: FDA-Public Use
  Company Number: US-ASTRAZENECA-2013SE62242

PATIENT
  Sex: 0

DRUGS (2)
  1. SEROQUEL [Suspect]
     Route: 048
  2. OTHER MEDICATIONS [Concomitant]

REACTIONS (1)
  - Hepatic steatosis [Unknown]
